FAERS Safety Report 5060099-9 (Version None)
Quarter: 2006Q3

REPORT INFORMATION
  Report Type: 
  Country: None (occurrence: None)
  Receive Date: 20060719
  Receipt Date: 20060711
  Transmission Date: 20061208
  Serious: Yes (Other)
  Sender: FDA-Public Use
  Company Number: A-CH2006-12580

PATIENT
  Age: 15 Year
  Sex: Female

DRUGS (4)
  1. TRACLEER [Suspect]
     Indication: PULMONARY HYPERTENSION
     Dosage: 62.5 MG, ORAL
     Route: 048
     Dates: start: 20020619
  2. BRONCHOTRETARD              (THEOPHYLLINE) [Concomitant]
  3. VENTAVIS [Concomitant]
  4. DIURETICS [Concomitant]

REACTIONS (2)
  - TRANSAMINASES INCREASED [None]
  - VIRAL INFECTION [None]
